FAERS Safety Report 7553531-X (Version None)
Quarter: 2011Q2

REPORT INFORMATION
  Report Type: 
  Country: None (occurrence: None)
  Receive Date: 20110617
  Receipt Date: 20110606
  Transmission Date: 20111010
  Serious: Yes (Death, Other)
  Sender: FDA-Public Use
  Company Number: US-BAYER-201041767NA

PATIENT
  Age: 84 Year
  Sex: Female
  Weight: 68.027 kg

DRUGS (6)
  1. MYSOLINE [Concomitant]
     Dosage: UNK UNK, QD
  2. ACETYLSALICYLIC ACID SRT [Concomitant]
     Dosage: UNK UNK, QD
  3. TRASYLOL [Suspect]
     Indication: CORONARY ARTERY BYPASS
     Route: 042
     Dates: start: 20040420, end: 20040420
  4. SYNTHROID [Concomitant]
     Dosage: UNK UNK, QD
  5. TRASYLOL [Suspect]
     Dosage: 400 ML
     Route: 042
     Dates: start: 20040422
  6. MICARDIS [Concomitant]
     Dosage: UNK UNK, QD

REACTIONS (14)
  - RENAL INJURY [None]
  - FEAR [None]
  - MULTI-ORGAN FAILURE [None]
  - EMOTIONAL DISTRESS [None]
  - CARDIOGENIC SHOCK [None]
  - DEATH [None]
  - RENAL IMPAIRMENT [None]
  - PAIN [None]
  - RENAL FAILURE [None]
  - STRESS [None]
  - UNEVALUABLE EVENT [None]
  - INJURY [None]
  - ANXIETY [None]
  - PSYCHIATRIC SYMPTOM [None]
